FAERS Safety Report 5822009-3 (Version None)
Quarter: 2008Q3

REPORT INFORMATION
  Report Type: 
  Country: None (occurrence: None)
  Receive Date: 20080724
  Receipt Date: 20080714
  Transmission Date: 20090109
  Serious: Yes (Hospitalization)
  Sender: FDA-Public Use
  Company Number: US-GENENTECH-263351

PATIENT
  Sex: Female
  Weight: 15.8 kg

DRUGS (2)
  1. HUMATROPE [Suspect]
     Indication: TURNER'S SYNDROME
     Dosage: 1 MG, 6/WEEK
     Dates: start: 20041115
  2. ASPIRIN [Concomitant]

REACTIONS (1)
  - KAWASAKI'S DISEASE [None]
